FAERS Safety Report 25089832 (Version 1)
Quarter: 2025Q1

REPORT INFORMATION
  Report Type: Spontaneous
  Country: US (occurrence: None)
  Receive Date: 20250317
  Receipt Date: 20250317
  Transmission Date: 20250408
  Serious: No
  Sender: FDA-CTU
  Company Number: None

PATIENT
  Age: 61 Year
  Sex: Male
  Weight: 74.25 kg

DRUGS (3)
  1. PANZYGA [Suspect]
     Active Substance: HUMAN IMMUNOGLOBULIN G
     Indication: Immunodeficiency common variable
     Route: 042
  2. UNSPECIFIED INGREDIENT [Concomitant]
     Active Substance: UNSPECIFIED INGREDIENT
  3. VITAMIN C [Concomitant]
     Active Substance: ASCORBIC ACID

REACTIONS (2)
  - Urticaria [None]
  - Infusion related reaction [None]

NARRATIVE: CASE EVENT DATE: 20250313
